FAERS Safety Report 22594632 (Version 1)
Quarter: 2023Q2

REPORT INFORMATION
  Report Type: Spontaneous
  Country: DK (occurrence: DK)
  Receive Date: 20230613
  Receipt Date: 20230613
  Transmission Date: 20230721
  Serious: Yes (Life-Threatening, Hospitalization, Disabling, Other)
  Sender: FDA-Public Use
  Company Number: None

PATIENT
  Age: 69 Year
  Sex: Male
  Weight: 80 kg

DRUGS (8)
  1. ELIQUIS [Suspect]
     Active Substance: APIXABAN
     Indication: Thrombosis prophylaxis
     Dosage: FREQUENCY TIME: 1 DAY
     Route: 048
     Dates: start: 20200325, end: 20230513
  2. ZARATOR [ATORVASTATIN] [Concomitant]
     Indication: Cardiovascular event prophylaxis
     Dates: start: 20200209
  3. LOSARTAN [Concomitant]
     Active Substance: LOSARTAN
     Indication: Renal disorder
     Dates: start: 20230517
  4. FUROSEMIDE [Concomitant]
     Active Substance: FUROSEMIDE
     Indication: Diuretic therapy
     Dates: start: 20200326
  5. SERTRALIN KRKA [SERTRALINE] [Concomitant]
     Indication: Anxiety
     Dates: start: 20200326
  6. PANTOPRAZOLE SODIUM [Concomitant]
     Active Substance: PANTOPRAZOLE SODIUM
     Indication: Gastric ulcer
     Dates: start: 20200401
  7. POTASSIUM CHLORIDE [Concomitant]
     Active Substance: POTASSIUM CHLORIDE
     Indication: Mineral supplementation
     Dates: start: 20180508
  8. FOLIC ACID [Concomitant]
     Active Substance: FOLIC ACID
     Indication: Vitamin supplementation
     Dates: start: 20200408

REACTIONS (4)
  - Ataxia [Not Recovered/Not Resolved]
  - Cerebral haemorrhage [Recovering/Resolving]
  - Facial paresis [Not Recovered/Not Resolved]
  - Gait disturbance [Not Recovered/Not Resolved]

NARRATIVE: CASE EVENT DATE: 20230513
